FAERS Safety Report 11619151 (Version 2)
Quarter: 2016Q4

REPORT INFORMATION
  Report Type: Spontaneous
  Country: US (occurrence: US)
  Receive Date: 20151012
  Receipt Date: 20161212
  Transmission Date: 20170206
  Serious: Yes (Other)
  Sender: FDA-Public Use
  Company Number: US-ELI_LILLY_AND_COMPANY-US201510000971

PATIENT
  Sex: Male

DRUGS (4)
  1. CYMBALTA [Suspect]
     Active Substance: DULOXETINE HYDROCHLORIDE
     Indication: PAIN
     Dosage: 30 MG, EACH EVENING
     Route: 065
     Dates: start: 20081231
  2. CYMBALTA [Suspect]
     Active Substance: DULOXETINE HYDROCHLORIDE
     Indication: DEPRESSION
     Dosage: 60 MG, EACH EVENING
     Route: 065
     Dates: start: 20090306, end: 20091030
  3. ATENOLOL. [Concomitant]
     Active Substance: ATENOLOL
     Indication: HYPERTENSION
     Dosage: UNK, UNKNOWN
     Route: 065
  4. CYMBALTA [Suspect]
     Active Substance: DULOXETINE HYDROCHLORIDE
     Dosage: 30 MG, EACH EVENING
     Route: 065
     Dates: start: 20110520

REACTIONS (21)
  - Sleep disorder [Unknown]
  - Nausea [Unknown]
  - Dizziness [Unknown]
  - Anxiety [Unknown]
  - Drug withdrawal syndrome [Unknown]
  - Paraesthesia [Unknown]
  - Agitation [Unknown]
  - Nightmare [Unknown]
  - Confusional state [Unknown]
  - Seizure [Unknown]
  - Irritability [Unknown]
  - Fatigue [Unknown]
  - Headache [Unknown]
  - Lethargy [Unknown]
  - Mood swings [Unknown]
  - Vertigo [Unknown]
  - Diarrhoea [Unknown]
  - Hyperhidrosis [Unknown]
  - Affect lability [Unknown]
  - Insomnia [Unknown]
  - Dysphoria [Unknown]
